FAERS Safety Report 14676558 (Version 1)
Quarter: 2018Q1

REPORT INFORMATION
  Report Type: Report from Study
  Country: BR (occurrence: BR)
  Receive Date: 20180324
  Receipt Date: 20180324
  Transmission Date: 20180509
  Serious: Yes (Other)
  Sender: FDA-Public Use
  Company Number: BR-ROCHE-2089939

PATIENT
  Sex: Male
  Weight: 56 kg

DRUGS (4)
  1. TAXOL [Concomitant]
     Active Substance: PACLITAXEL
     Indication: BREAST CANCER
     Dosage: EVERY 3 WEEKS
     Route: 065
     Dates: start: 20151201, end: 20151201
  2. HERCEPTIN [Suspect]
     Active Substance: TRASTUZUMAB
     Indication: BREAST CANCER
     Dosage: EVERY 3 WEEKS
     Route: 065
     Dates: start: 20150811, end: 20151201
  3. HERCEPTIN [Suspect]
     Active Substance: TRASTUZUMAB
     Dosage: EVERY 3 WEEKS
     Route: 065
     Dates: start: 20150818, end: 20160310
  4. TAXOTERE [Concomitant]
     Active Substance: DOCETAXEL
     Indication: BREAST CANCER
     Dosage: EVERY 3 WEEKS
     Route: 065
     Dates: start: 20150819, end: 20160818

REACTIONS (2)
  - Drug ineffective [Unknown]
  - Disease progression [Unknown]
